FAERS Safety Report 7979130-3 (Version None)
Quarter: 2011Q4

REPORT INFORMATION
  Report Type: 
  Country: None (occurrence: None)
  Receive Date: 20111201
  Receipt Date: 20111118
  Transmission Date: 20120403
  Serious: Yes (Death, Life-Threatening, Hospitalization, Other)
  Sender: FDA-Public Use
  Company Number: 2011MA016631

PATIENT
  Sex: Female
  Weight: 58.9676 kg

DRUGS (37)
  1. COUMADIN [Concomitant]
  2. IRON SUPPLEMENT [Concomitant]
  3. KAYEXALATE [Concomitant]
  4. REQUIP [Concomitant]
  5. SYNTHROID [Concomitant]
  6. TENORMIN [Concomitant]
  7. ATROPINE [Concomitant]
  8. DARVOCET [Concomitant]
  9. LASIX [Concomitant]
  10. LEVAQUIN [Concomitant]
  11. PAMELOR [Concomitant]
  12. ALLOPURINOL [Concomitant]
  13. CALCIUM CHLORIDE [Concomitant]
  14. SODIUM BICARBONATE [Concomitant]
  15. SODIUM BICARBONATE [Concomitant]
  16. ALBUTEROL [Concomitant]
  17. LOVENOX [Concomitant]
  18. MAGNESIUM OXIDE [Concomitant]
  19. MORPHINE [Concomitant]
  20. POTASSIUM CHLORIDE [Concomitant]
  21. DOPAMINE HCL [Concomitant]
  22. ATIVAN [Concomitant]
  23. ATROVENT [Concomitant]
  24. HALDOL [Concomitant]
  25. PERCOCET [Concomitant]
  26. PRINIVIL [Concomitant]
  27. SURFAK [Concomitant]
  28. ZOCOR [Concomitant]
  29. ZOLOFT [Concomitant]
  30. ZYVOX [Concomitant]
  31. DIGOXIN [Suspect]
     Indication: HEART RATE ABNORMAL
     Dosage: 0.5 MG;IV
     Route: 042
     Dates: start: 20080409, end: 20080421
  32. COLCHICINE [Concomitant]
  33. FLONASE [Concomitant]
  34. SOLU-MEDROL [Concomitant]
  35. TRICOR [Concomitant]
  36. ADVAIR DISKUS 100/50 [Concomitant]
  37. ANTIBIOTICS [Concomitant]

REACTIONS (30)
  - DECREASED APPETITE [None]
  - STAPHYLOCOCCUS TEST POSITIVE [None]
  - CARDIO-RESPIRATORY ARREST [None]
  - WEIGHT DECREASED [None]
  - HYPOXIA [None]
  - TOXICITY TO VARIOUS AGENTS [None]
  - INJURY [None]
  - ASTHENIA [None]
  - RENAL FAILURE ACUTE [None]
  - ARRHYTHMIA [None]
  - DEHYDRATION [None]
  - BLOOD CALCIUM DECREASED [None]
  - CHRONIC OBSTRUCTIVE PULMONARY DISEASE [None]
  - DIARRHOEA [None]
  - POSTURING [None]
  - GENERAL PHYSICAL HEALTH DETERIORATION [None]
  - GASTRITIS [None]
  - BLOOD PRESSURE DECREASED [None]
  - HYPOKALAEMIA [None]
  - PUPIL FIXED [None]
  - VENTRICULAR HYPERTROPHY [None]
  - CARDIOMEGALY [None]
  - DIZZINESS [None]
  - METABOLIC ACIDOSIS [None]
  - CONDITION AGGRAVATED [None]
  - HYPOTENSION [None]
  - ATRIAL FIBRILLATION [None]
  - DEEP VEIN THROMBOSIS [None]
  - DIVERTICULUM [None]
  - BLOOD POTASSIUM INCREASED [None]
